FAERS Safety Report 5135030-8 (Version None)
Quarter: 2006Q4

REPORT INFORMATION
  Report Type: 
  Country: None (occurrence: None)
  Receive Date: 20061025
  Receipt Date: 20061017
  Transmission Date: 20070319
  Serious: Yes (Hospitalization)
  Sender: FDA-Public Use
  Company Number: FR-MERCK-0610FRA00051

PATIENT
  Age: 90 Year
  Sex: Female

DRUGS (6)
  1. NOROXIN [Suspect]
     Indication: URINARY TRACT INFECTION
     Route: 048
     Dates: start: 20060920, end: 20060925
  2. FLUINDIONE [Suspect]
     Route: 048
     Dates: end: 20060916
  3. FLUINDIONE [Suspect]
     Route: 048
     Dates: start: 20060919, end: 20060926
  4. FLUINDIONE [Suspect]
     Route: 048
     Dates: start: 20060901, end: 20061002
  5. SPIRAMYCIN [Concomitant]
     Route: 042
     Dates: start: 20060921, end: 20060927
  6. PREDNISOLONE SODIUM METASULFOBENZOATE [Concomitant]
     Route: 048
     Dates: start: 20060922, end: 20061005

REACTIONS (6)
  - DRUG INTERACTION [None]
  - HAEMATOMA [None]
  - INTERNATIONAL NORMALISED RATIO INCREASED [None]
  - OVERDOSE [None]
  - URINARY TRACT INFECTION [None]
  - VOMITING [None]
